FAERS Safety Report 22624432 (Version 1)
Quarter: 2023Q2

REPORT INFORMATION
  Report Type: Spontaneous
  Country: US (occurrence: None)
  Receive Date: 20230619
  Receipt Date: 20230619
  Transmission Date: 20230721
  Serious: Yes (Life-Threatening, Hospitalization)
  Sender: FDA-Public Use
  Company Number: None

PATIENT
  Age: 81 Year
  Sex: Male
  Weight: 80.6 kg

DRUGS (6)
  1. ELIQUIS [Suspect]
     Active Substance: APIXABAN
     Indication: Atrial fibrillation
     Dosage: FREQUENCY : TWICE A DAY;?
     Route: 048
     Dates: start: 20210623, end: 20230616
  2. finasteride 5mg daily [Concomitant]
  3. fluoxetine 20mg daily [Concomitant]
  4. hydralazine 25mg BID [Concomitant]
  5. Memantine 10mg Daily [Concomitant]
  6. Lopressor 100mg BID [Concomitant]

REACTIONS (6)
  - Haematochezia [None]
  - Blood loss anaemia [None]
  - Shock haemorrhagic [None]
  - Metabolic acidosis [None]
  - Acute kidney injury [None]
  - Gastrointestinal haemorrhage [None]

NARRATIVE: CASE EVENT DATE: 20230616
